FAERS Safety Report 11688303 (Version 1)
Quarter: 2015Q4

REPORT INFORMATION
  Report Type: Spontaneous
  Country: JP (occurrence: JP)
  Receive Date: 20151031
  Receipt Date: 20151031
  Transmission Date: 20160304
  Serious: Yes (Hospitalization, Other)
  Sender: FDA-Public Use
  Company Number: JP-ACCORD-034911

PATIENT
  Age: 78 Year
  Sex: Female

DRUGS (5)
  1. MIRTAZAPINE. [Concomitant]
     Active Substance: MIRTAZAPINE
  2. ESCITALOPRAM [Suspect]
     Active Substance: ESCITALOPRAM OXALATE
     Indication: PRODUCT USED FOR UNKNOWN INDICATION
     Dosage: FOR MORE THAN 6 MONTHS
  3. NITRAZEPAM [Suspect]
     Active Substance: NITRAZEPAM
     Indication: PRODUCT USED FOR UNKNOWN INDICATION
  4. RISPERIDONE. [Suspect]
     Active Substance: RISPERIDONE
     Indication: PRODUCT USED FOR UNKNOWN INDICATION
  5. LEVOFLOXACIN/LEVOFLOXACIN MESYLATE [Concomitant]

REACTIONS (6)
  - Serotonin syndrome [Recovered/Resolved]
  - Bradykinesia [Recovering/Resolving]
  - Insomnia [Recovered/Resolved]
  - Urinary tract infection [Recovering/Resolving]
  - Somnolence [Recovering/Resolving]
  - Dehydration [Recovering/Resolving]
